FAERS Safety Report 5575046-0 (Version None)
Quarter: 2007Q4

REPORT INFORMATION
  Report Type: 
  Country: None (occurrence: None)
  Receive Date: 20071221
  Receipt Date: 20071221
  Transmission Date: 20080405
  Serious: Yes (Other)
  Sender: FDA-Public Use
  Company Number: None

PATIENT
  Sex: Female
  Weight: 63.71 kg

DRUGS (1)
  1. RITUXAN [Suspect]

REACTIONS (7)
  - BLOOD PRESSURE SYSTOLIC INCREASED [None]
  - BODY TEMPERATURE INCREASED [None]
  - CHILLS [None]
  - DRY THROAT [None]
  - DYSPHAGIA [None]
  - HEART RATE INCREASED [None]
  - INFUSION RELATED REACTION [None]
